FAERS Safety Report 19402727 (Version 1)
Quarter: 2021Q2

REPORT INFORMATION
  Report Type: Spontaneous
  Country: US (occurrence: US)
  Receive Date: 20210610
  Receipt Date: 20210610
  Transmission Date: 20210717
  Serious: No
  Sender: FDA-Public Use
  Company Number: US-GALDERMA-US2020001144

PATIENT
  Age: 56 Year
  Sex: Female

DRUGS (3)
  1. DIFFERIN GEL [Suspect]
     Active Substance: ADAPALENE
     Indication: ACNE
     Dosage: 0.1%
     Route: 061
  2. DIFFERIN REFRESHING CLEANSER [Suspect]
     Active Substance: COSMETICS
     Indication: ACNE
     Route: 061
  3. DIFFERIN GENTLE CLEANSER (COSMETICS) [Suspect]
     Active Substance: COSMETICS
     Indication: ACNE
     Route: 061

REACTIONS (3)
  - Skin tightness [Unknown]
  - Acne [Unknown]
  - Dry skin [Unknown]
